FAERS Safety Report 5939907-2 (Version None)
Quarter: 2008Q4

REPORT INFORMATION
  Report Type: 
  Country: None (occurrence: None)
  Receive Date: 20081030
  Receipt Date: 20081030
  Transmission Date: 20090506
  Serious: Yes (Hospitalization)
  Sender: FDA-Public Use
  Company Number: None

PATIENT
  Sex: Female
  Weight: 64.1 kg

DRUGS (6)
  1. CYCLOPHOSPHAMIDE [Suspect]
     Dosage: 1300 MG
     Dates: start: 20081009, end: 20081009
  2. DOXORUBICIN HYDROCHLORIDE [Suspect]
     Dosage: 87 MG
  3. PREDNISONE TAB [Suspect]
     Dosage: 900 MG
  4. RITUXIMAB(MOAB C2B8 ANTI CD20 CHIMERIC) [Suspect]
  5. VINCRISTINE SULFATE [Suspect]
     Dosage: 2 MG
  6. NEULASTA [Concomitant]

REACTIONS (3)
  - ASTHENIA [None]
  - DECREASED APPETITE [None]
  - PYREXIA [None]
